FAERS Safety Report 5772102-9 (Version None)
Quarter: 2008Q2

REPORT INFORMATION
  Report Type: 
  Country: None (occurrence: None)
  Receive Date: 20080612
  Receipt Date: 20080612
  Transmission Date: 20081010
  Serious: Yes (Other)
  Sender: FDA-Public Use
  Company Number: None

PATIENT
  Sex: Female
  Weight: 103.8737 kg

DRUGS (2)
  1. FENTANYL-25 [Suspect]
     Indication: BACK PAIN
     Dosage: 25MCG CHANGE Q72 TRANSDERMAL
     Route: 062
     Dates: start: 20080201, end: 20080501
  2. FENTANYL-25 [Suspect]
     Indication: NECK PAIN
     Dosage: 25MCG CHANGE Q72 TRANSDERMAL
     Route: 062
     Dates: start: 20080201, end: 20080501

REACTIONS (4)
  - DEPRESSION [None]
  - DRUG EFFECT DECREASED [None]
  - EMOTIONAL DISORDER [None]
  - PAIN [None]
